FAERS Safety Report 6326465-6 (Version None)
Quarter: 2009Q3

REPORT INFORMATION
  Report Type: 
  Country: None (occurrence: None)
  Receive Date: 20090825
  Receipt Date: 20090812
  Transmission Date: 20100115
  Serious: Yes (Death, Hospitalization)
  Sender: FDA-Public Use
  Company Number: ES-ELI_LILLY_AND_COMPANY-ES200906006834

PATIENT
  Sex: Female
  Weight: 57 kg

DRUGS (12)
  1. PEMETREXED [Suspect]
     Indication: LUNG NEOPLASM MALIGNANT
     Dosage: 765 MG ON DAY 1 OF CYCLE
     Route: 042
     Dates: start: 20090619
  2. CETUXIMAB [Suspect]
     Indication: LUNG NEOPLASM MALIGNANT
     Dosage: 612 MG ON DAY 1, 8, 15 OF CYCLE
     Route: 042
     Dates: start: 20090619, end: 20090625
  3. CISPLATIN [Suspect]
     Indication: LUNG NEOPLASM MALIGNANT
     Dosage: 114.75 MG ON DAY 1 OF CYCLE
     Route: 042
     Dates: start: 20090619
  4. FOLI-DOCE [Concomitant]
     Indication: PREMEDICATION
     Dosage: 400 MG, UNK
     Dates: start: 20090611
  5. OPTOVITE B12 [Concomitant]
     Indication: PREMEDICATION
     Dates: start: 20090611
  6. MS CONTIN [Concomitant]
     Indication: PAIN
     Dosage: 30 MG, UNKNOWN
     Dates: start: 20090619
  7. FORTECORTIN [Concomitant]
     Indication: NAUSEA
     Dosage: 4 MG, UNKNOWN
     Dates: start: 20090619
  8. FLUOXETINA [Concomitant]
     Indication: DEPRESSION
     Dosage: 10 MG, UNKNOWN
     Dates: start: 20090619
  9. EMPORTAL [Concomitant]
     Indication: LAXATIVE SUPPORTIVE CARE
     Dates: start: 20090619
  10. OMEPRAZOLE [Concomitant]
     Indication: PROPHYLAXIS
     Dates: start: 20090619
  11. FLAGYL [Concomitant]
     Dosage: 1.5 G, DAILY (1/D)
  12. NOLOTIL [Concomitant]

REACTIONS (1)
  - LARGE INTESTINE PERFORATION [None]
